FAERS Safety Report 19057420 (Version 4)
Quarter: 2021Q2

REPORT INFORMATION
  Report Type: Report from Study
  Country: IT (occurrence: IT)
  Receive Date: 20210325
  Receipt Date: 20210423
  Transmission Date: 20210717
  Serious: Yes (Death, Hospitalization)
  Sender: FDA-Public Use
  Company Number: IT-CELGENEUS-ITA-20210305273

PATIENT
  Age: 80 Year
  Sex: Female

DRUGS (17)
  1. BACTRIM [Concomitant]
     Active Substance: SULFAMETHOXAZOLE\TRIMETHOPRIM
     Indication: PROPHYLAXIS
     Route: 065
     Dates: start: 20201112
  2. EUTIROX [Concomitant]
     Active Substance: LEVOTHYROXINE SODIUM
     Indication: PRODUCT USED FOR UNKNOWN INDICATION
     Route: 065
     Dates: start: 19900101
  3. CARDIOASPIRINA [Concomitant]
     Active Substance: ASPIRIN
     Indication: PRODUCT USED FOR UNKNOWN INDICATION
     Route: 065
     Dates: start: 19900101
  4. LOBIDIUR [Concomitant]
     Active Substance: HYDROCHLOROTHIAZIDE\NEBIVOLOL HYDROCHLORIDE
     Indication: PRODUCT USED FOR UNKNOWN INDICATION
     Route: 065
     Dates: start: 19900101
  5. COVERLAM [Concomitant]
     Active Substance: AMLODIPINE BESYLATE\PERINDOPRIL ARGININE
     Indication: PRODUCT USED FOR UNKNOWN INDICATION
     Route: 065
     Dates: start: 19900101
  6. INHIXA [Concomitant]
     Active Substance: ENOXAPARIN SODIUM
     Indication: PROPHYLAXIS
     Route: 065
     Dates: start: 20201113
  7. DEXAMETHASONE. [Suspect]
     Active Substance: DEXAMETHASONE
     Indication: PLASMA CELL MYELOMA
     Dosage: 20 MILLIGRAM
     Route: 065
     Dates: start: 20201113, end: 20210317
  8. ACICLIN [Concomitant]
     Active Substance: ACYCLOVIR
     Indication: PROPHYLAXIS
     Route: 065
     Dates: start: 20201112
  9. LENALIDOMIDE [Suspect]
     Active Substance: LENALIDOMIDE
     Indication: PLASMA CELL MYELOMA
     Dosage: 20 MILLIGRAM
     Route: 048
     Dates: start: 20201113, end: 20210317
  10. CARFILZOMIB [Suspect]
     Active Substance: CARFILZOMIB
     Indication: PLASMA CELL MYELOMA
     Dosage: 94 MILLIGRAM
     Route: 065
     Dates: start: 20201113, end: 20210305
  11. ZEFFIX [Concomitant]
     Active Substance: LAMIVUDINE
     Indication: PROPHYLAXIS
     Route: 065
     Dates: start: 20201112
  12. DELTACORTENE [Concomitant]
     Active Substance: PREDNISONE
     Indication: ADVERSE EVENT
     Route: 065
     Dates: start: 20201120, end: 20210212
  13. ZOFRAN [Concomitant]
     Active Substance: ONDANSETRON HYDROCHLORIDE
     Indication: ADVERSE EVENT
     Route: 065
     Dates: start: 20201120, end: 20210108
  14. LANSOPRAZOLO [Concomitant]
     Active Substance: LANSOPRAZOLE
     Indication: PRODUCT USED FOR UNKNOWN INDICATION
     Route: 065
     Dates: start: 19900101
  15. TALAVIR [Concomitant]
     Active Substance: VALACYCLOVIR HYDROCHLORIDE
     Indication: PROPHYLAXIS
     Route: 065
     Dates: start: 20201112, end: 20201120
  16. CERCHIO [Concomitant]
     Active Substance: CETIRIZINE HYDROCHLORIDE
     Indication: ADVERSE EVENT
     Route: 065
     Dates: start: 20201120, end: 20210212
  17. OXYCONTIN [Concomitant]
     Active Substance: OXYCODONE HYDROCHLORIDE
     Indication: PLASMA CELL MYELOMA
     Route: 065
     Dates: start: 20201111

REACTIONS (2)
  - COVID-19 [Fatal]
  - Ascites [Not Recovered/Not Resolved]

NARRATIVE: CASE EVENT DATE: 20210318
